FAERS Safety Report 7283371-0 (Version None)
Quarter: 2011Q1

REPORT INFORMATION
  Report Type: 
  Country: None (occurrence: None)
  Receive Date: 20110209
  Receipt Date: 20100628
  Transmission Date: 20110831
  Serious: No
  Sender: FDA-Public Use
  Company Number: A0867540A

PATIENT
  Age: 78 Year
  Sex: Female

DRUGS (2)
  1. PAXIL [Suspect]
     Dosage: 20MG PER DAY
     Route: 048
     Dates: start: 20100601
  2. LISINOPRIL [Concomitant]

REACTIONS (13)
  - SKIN EXFOLIATION [None]
  - PRURITUS [None]
  - EYE OPERATION [None]
  - GAIT DISTURBANCE [None]
  - HEADACHE [None]
  - RASH MACULAR [None]
  - WEIGHT DECREASED [None]
  - ABNORMAL DREAMS [None]
  - RASH [None]
  - CHILLS [None]
  - TINNITUS [None]
  - DIZZINESS [None]
  - INCREASED TENDENCY TO BRUISE [None]
